FAERS Safety Report 8623091 (Version 4)
Quarter: 2013Q1

REPORT INFORMATION
  Report Type: Spontaneous
  Country: US (occurrence: US)
  Receive Date: 20120620
  Receipt Date: 20130204
  Transmission Date: 20140127
  Serious: Yes (Hospitalization)
  Sender: FDA-Public Use
  Company Number: US-BIOGENIDEC-2012BI021070

PATIENT
  Age: 23 Year
  Sex: Male
  Weight: 111 kg

DRUGS (10)
  1. TYSABRI [Suspect]
     Indication: MULTIPLE SCLEROSIS
     Route: 042
     Dates: start: 20110207, end: 20120517
  2. ALEVE [Concomitant]
  3. DETROL LA [Concomitant]
  4. FISH OIL [Concomitant]
  5. K GLUCONATE [Concomitant]
  6. VITAMIN B COMPLEX [Concomitant]
  7. VITAMIN D3 [Concomitant]
  8. PREDNISONE [Concomitant]
  9. ACETAMINOPHEN [Concomitant]
     Dates: start: 20120406, end: 20120406
  10. DIPHENHYDRAMINE [Concomitant]
     Dates: start: 20120406, end: 20120406

REACTIONS (2)
  - Hepatitis [Recovered/Resolved]
  - Pain [Not Recovered/Not Resolved]
